FAERS Safety Report 4276626-5 (Version None)
Quarter: 2004Q1

REPORT INFORMATION
  Report Type: 
  Country: None (occurrence: None)
  Receive Date: 20040120
  Receipt Date: 20040106
  Transmission Date: 20041129
  Serious: Yes (Death, Hospitalization, Other)
  Sender: FDA-Public Use
  Company Number: T-067-010

PATIENT
  Age: 52 Year
  Sex: Male

DRUGS (1)
  1. DOXORUBICIN HCL [Suspect]
     Indication: HEPATIC NEOPLASM MALIGNANT
     Dosage: 60 MG/M2 IV X1
     Route: 042
     Dates: start: 20031226, end: 20031226

REACTIONS (2)
  - HEPATIC FAILURE [None]
  - PANCYTOPENIA [None]
